FAERS Safety Report 17313469 (Version 2)
Quarter: 2020Q1

REPORT INFORMATION
  Report Type: Report from Study
  Country: BR (occurrence: BR)
  Receive Date: 20200124
  Receipt Date: 20200211
  Transmission Date: 20200409
  Serious: Yes (Other)
  Sender: FDA-Public Use
  Company Number: BR-ROCHE-2465135

PATIENT
  Sex: Female

DRUGS (2)
  1. XOLAIR [Suspect]
     Active Substance: OMALIZUMAB
     Dosage: UNK
     Route: 065
     Dates: start: 20190910
  2. XOLAIR [Suspect]
     Active Substance: OMALIZUMAB
     Indication: PRODUCT USED FOR UNKNOWN INDICATION
     Dosage: UNK
     Route: 065
     Dates: start: 20190619

REACTIONS (7)
  - Swollen tongue [Unknown]
  - Condition aggravated [Unknown]
  - Urticaria [Unknown]
  - Wound [Unknown]
  - Immunodeficiency [Unknown]
  - Anaphylactic shock [Unknown]
  - Milk allergy [Unknown]
